FAERS Safety Report 17866687 (Version 1)
Quarter: 2020Q2

REPORT INFORMATION
  Report Type: Spontaneous
  Country: US (occurrence: US)
  Receive Date: 20200605
  Receipt Date: 20200605
  Transmission Date: 20200714
  Serious: No
  Sender: FDA-Public Use
  Company Number: US-SA-2020SA144527

PATIENT

DRUGS (2)
  1. DUPIXENT [Suspect]
     Active Substance: DUPILUMAB
     Indication: ASTHMA
     Dosage: 300 MG, QOW
  2. XOLAIR [Concomitant]
     Active Substance: OMALIZUMAB
     Indication: URTICARIA

REACTIONS (2)
  - Blood immunoglobulin E decreased [Unknown]
  - Eosinophil count increased [Unknown]
